FAERS Safety Report 23300869 (Version 1)
Quarter: 2023Q4

REPORT INFORMATION
  Report Type: Other
  Country: CN (occurrence: None)
  Receive Date: 20231215
  Receipt Date: 20231215
  Transmission Date: 20240110
  Serious: Yes (Hospitalization)
  Sender: FDA-Public Use
  Company Number: CN-Navinta LLC-000478

PATIENT
  Age: 11 Year
  Sex: Male
  Weight: 39 kg

DRUGS (8)
  1. INDOMETHACIN [Suspect]
     Active Substance: INDOMETHACIN
     Indication: Hypokalaemia
     Dosage: 37.5 MG/D DIVIDED TID (THREE TIMES A DAY)
  2. POTASSIUM [Concomitant]
     Active Substance: POTASSIUM
     Indication: Product used for unknown indication
  3. SPIRONOLACTONE [Concomitant]
     Active Substance: SPIRONOLACTONE
     Indication: Product used for unknown indication
     Dosage: 3-5 MG/KG/D
  4. POTASSIUM [Concomitant]
     Active Substance: POTASSIUM
     Indication: Product used for unknown indication
     Route: 048
  5. POTASSIUM [Concomitant]
     Active Substance: POTASSIUM
     Indication: Product used for unknown indication
     Route: 042
  6. INDOMETHACIN [Suspect]
     Active Substance: INDOMETHACIN
     Indication: Hypokalaemia
     Dosage: 50 MG/DAY
  7. INDOMETHACIN [Suspect]
     Active Substance: INDOMETHACIN
     Indication: Hypokalaemia
     Dosage: 75 MG/D DIVIDED TID (THREE TIMES A DAY)
  8. INDOMETHACIN [Suspect]
     Active Substance: INDOMETHACIN
     Indication: Hypokalaemia
     Dosage: 15 MG/D BID (TWICE A DAY)

REACTIONS (1)
  - Gitelman^s syndrome [Recovered/Resolved]
